FAERS Safety Report 6031303-5 (Version None)
Quarter: 2008Q4

REPORT INFORMATION
  Report Type: 
  Country: None (occurrence: None)
  Receive Date: 20081222
  Receipt Date: 20081017
  Transmission Date: 20090506
  Serious: No
  Sender: FDA-Public Use
  Company Number: US-WYE-H06480408

PATIENT
  Sex: Female

DRUGS (2)
  1. PRISTIQ [Suspect]
  2. EFFEXOR XR [Suspect]

REACTIONS (4)
  - DIZZINESS [None]
  - DRUG WITHDRAWAL SYNDROME [None]
  - NAUSEA [None]
  - VERTIGO [None]
